FAERS Safety Report 19580672 (Version 1)
Quarter: 2021Q3

REPORT INFORMATION
  Report Type: Spontaneous
  Country: US (occurrence: US)
  Receive Date: 20210719
  Receipt Date: 20210719
  Transmission Date: 20211014
  Serious: No
  Sender: FDA-Public Use
  Company Number: US-NOVOPROD-800731

PATIENT
  Age: 57 Year
  Sex: Female

DRUGS (1)
  1. OZEMPIC [Suspect]
     Active Substance: SEMAGLUTIDE
     Indication: INSULIN RESISTANCE
     Dosage: 0.50 MG QW
     Route: 058
     Dates: start: 202007

REACTIONS (6)
  - Lymphadenopathy [Recovered/Resolved]
  - Lymphadenopathy [Not Recovered/Not Resolved]
  - Product use in unapproved indication [Unknown]
  - Oropharyngeal pain [Recovered/Resolved]
  - Dysphagia [Not Recovered/Not Resolved]
  - Hypersomnia [Recovered/Resolved]

NARRATIVE: CASE EVENT DATE: 20210324
